FAERS Safety Report 21357547 (Version 1)
Quarter: 2022Q3

REPORT INFORMATION
  Report Type: Spontaneous
  Country: CA (occurrence: None)
  Receive Date: 20220921
  Receipt Date: 20220921
  Transmission Date: 20221027
  Serious: Yes (Hospitalization)
  Sender: FDA-Public Use
  Company Number: CA-ROCHE-3181316

PATIENT
  Age: 85 Year
  Sex: Male

DRUGS (21)
  1. MYCOPHENOLATE MOFETIL [Suspect]
     Active Substance: MYCOPHENOLATE MOFETIL
     Indication: Product used for unknown indication
     Route: 065
  2. RITUXIMAB [Suspect]
     Active Substance: RITUXIMAB
     Indication: Rheumatoid arthritis
     Route: 042
  3. RITUXIMAB [Suspect]
     Active Substance: RITUXIMAB
     Indication: Pulmonary fibrosis
  4. RITUXIMAB [Suspect]
     Active Substance: RITUXIMAB
     Indication: Rheumatoid arthritis
     Route: 065
  5. RITUXIMAB [Suspect]
     Active Substance: RITUXIMAB
     Indication: Pulmonary fibrosis
  6. ACETAMINOPHEN [Concomitant]
     Active Substance: ACETAMINOPHEN
     Route: 048
  7. ADVAIR HFA [Concomitant]
     Active Substance: FLUTICASONE PROPIONATE\SALMETEROL XINAFOATE
  8. BENADRYL [Concomitant]
     Active Substance: DIPHENHYDRAMINE HYDROCHLORIDE
     Route: 048
  9. CHLORTHALIDONE [Concomitant]
     Active Substance: CHLORTHALIDONE
  10. CYANOCOBALAMIN [Concomitant]
     Active Substance: CYANOCOBALAMIN
  11. EFUDEX [Concomitant]
     Active Substance: FLUOROURACIL
     Route: 061
  12. FERROUS GLUCONATE [Concomitant]
     Active Substance: FERROUS GLUCONATE
  13. GLUCOSAMINE [Concomitant]
     Active Substance: GLUCOSAMINE
  14. NIFEDIPINE [Concomitant]
     Active Substance: NIFEDIPINE
  15. PANTOPRAZOLE [Concomitant]
     Active Substance: PANTOPRAZOLE
  16. PREDNISONE [Concomitant]
     Active Substance: PREDNISONE
  17. RABEPRAZOLE [Concomitant]
     Active Substance: RABEPRAZOLE
  18. SOLU-MEDROL [Concomitant]
     Active Substance: METHYLPREDNISOLONE SODIUM SUCCINATE
     Route: 042
  19. SULFASALAZINE [Concomitant]
     Active Substance: SULFASALAZINE
  20. TAMSULOSIN [Concomitant]
     Active Substance: TAMSULOSIN
  21. VITAMIN D3 [Concomitant]
     Active Substance: CHOLECALCIFEROL

REACTIONS (3)
  - Dehydration [Unknown]
  - Diarrhoea [Unknown]
  - Prostatomegaly [Unknown]
